FAERS Safety Report 6440377-9 (Version None)
Quarter: 2009Q4

REPORT INFORMATION
  Report Type: 
  Country: None (occurrence: None)
  Receive Date: 20091113
  Receipt Date: 20091106
  Transmission Date: 20100525
  Serious: Yes (Hospitalization)
  Sender: FDA-Public Use
  Company Number: PHHO2009ES13813

PATIENT
  Sex: Male
  Weight: 88 kg

DRUGS (3)
  1. ZOMETA [Suspect]
     Route: 042
  2. SUNITINIB MALATE [Concomitant]
     Indication: PROSTATE CANCER
     Dosage: UNK
     Dates: start: 20091014
  3. PREDNISONE [Concomitant]
     Indication: PROSTATE CANCER
     Dosage: UNK
     Dates: start: 20091014

REACTIONS (1)
  - OSTEONECROSIS [None]
